FAERS Safety Report 19053252 (Version 2)
Quarter: 2021Q2

REPORT INFORMATION
  Report Type: Other
  Country: FR (occurrence: FR)
  Receive Date: 20210325
  Receipt Date: 20210504
  Transmission Date: 20210717
  Serious: Yes (Other)
  Sender: FDA-Public Use
  Company Number: FR-ROCHE-2793031

PATIENT
  Age: 57 Year
  Sex: Female

DRUGS (6)
  1. CAPECITABINE. [Suspect]
     Active Substance: CAPECITABINE
     Indication: HER2 POSITIVE BREAST CANCER
     Route: 048
     Dates: start: 20210205, end: 20210223
  2. TRASTUZUMAB. [Suspect]
     Active Substance: TRASTUZUMAB
     Indication: HER2 POSITIVE BREAST CANCER
     Route: 058
     Dates: start: 20210204, end: 20210204
  3. LAMOTRIGINE. [Concomitant]
     Active Substance: LAMOTRIGINE
     Dates: start: 20190701
  4. PREDNISOLONE. [Concomitant]
     Active Substance: PREDNISOLONE
     Indication: EPILEPSY
     Dates: start: 20201210
  5. TUCATINIB [Suspect]
     Active Substance: TUCATINIB
     Indication: HER2 POSITIVE BREAST CANCER
     Route: 048
     Dates: start: 20210105, end: 20210222
  6. URBANYL [Concomitant]
     Active Substance: CLOBAZAM
     Dosage: 5 MG, QD
     Route: 048
     Dates: start: 20201007, end: 20210215

REACTIONS (2)
  - Urticaria [Recovered/Resolved]
  - Herpangina [Recovered/Resolved]

NARRATIVE: CASE EVENT DATE: 20210223
